FAERS Safety Report 9347476 (Version 16)
Quarter: 2017Q3

REPORT INFORMATION
  Report Type: Report from Study
  Country: CA (occurrence: CA)
  Receive Date: 20130614
  Receipt Date: 20170720
  Transmission Date: 20171128
  Serious: Yes (Life-Threatening, Hospitalization, Other)
  Sender: FDA-Public Use
  Company Number: CA-ROCHE-1174641

PATIENT
  Age: 60 Year
  Sex: Female
  Weight: 96 kg

DRUGS (10)
  1. PLAQUENIL [Concomitant]
     Active Substance: HYDROXYCHLOROQUINE SULFATE
  2. ATENOLOL. [Concomitant]
     Active Substance: ATENOLOL
  3. MICARDIS PLUS [Concomitant]
     Active Substance: HYDROCHLOROTHIAZIDE\TELMISARTAN
  4. METHOTREXATE. [Concomitant]
     Active Substance: METHOTREXATE
  5. METFORMIN [Concomitant]
     Active Substance: METFORMIN HYDROCHLORIDE
  6. ROSUVASTATIN. [Concomitant]
     Active Substance: ROSUVASTATIN
  7. FOLIC ACID. [Concomitant]
     Active Substance: FOLIC ACID
  8. CELEBREX [Concomitant]
     Active Substance: CELECOXIB
  9. ACTEMRA [Suspect]
     Active Substance: TOCILIZUMAB
     Indication: RHEUMATOID ARTHRITIS
     Route: 042
     Dates: start: 200902
  10. ACTEMRA [Suspect]
     Active Substance: TOCILIZUMAB
     Dosage: 1ST RPAP DOSE
     Route: 042
     Dates: start: 20101101

REACTIONS (18)
  - Blood pressure increased [Unknown]
  - Pain in extremity [Not Recovered/Not Resolved]
  - Rheumatoid arthritis [Recovered/Resolved]
  - Gait inability [Recovered/Resolved]
  - Weight increased [Recovered/Resolved]
  - Heart rate decreased [Unknown]
  - Weight decreased [Unknown]
  - Peripheral swelling [Not Recovered/Not Resolved]
  - Joint instability [Unknown]
  - Blood pressure systolic decreased [Unknown]
  - Blood pressure decreased [Unknown]
  - Infusion related reaction [Unknown]
  - Blood pressure fluctuation [Unknown]
  - Hypotension [Unknown]
  - Myocardial infarction [Recovering/Resolving]
  - Blood pressure increased [Unknown]
  - Blood pressure systolic abnormal [Unknown]
  - Blood pressure systolic increased [Unknown]

NARRATIVE: CASE EVENT DATE: 20121227
